FAERS Safety Report 8029893-6 (Version None)
Quarter: 2011Q4

REPORT INFORMATION
  Report Type: 
  Country: None (occurrence: None)
  Receive Date: 20111130
  Receipt Date: 20110421
  Transmission Date: 20120403
  Serious: Yes (Hospitalization, Other)
  Sender: FDA-Public Use
  Company Number: US201104006232

PATIENT
  Age: 84 Year
  Sex: Female

DRUGS (3)
  1. ACTOS [Concomitant]
  2. HYDROCHLOROTHIAZIDE [Concomitant]
  3. BYETTA [Suspect]
     Dosage: 10 UG
     Dates: start: 20090501, end: 20110401

REACTIONS (1)
  - PANCREATITIS [None]
